FAERS Safety Report 4957054-3 (Version None)
Quarter: 2006Q1

REPORT INFORMATION
  Report Type: 
  Country: None (occurrence: None)
  Receive Date: 20060323
  Receipt Date: 20060313
  Transmission Date: 20060701
  Serious: Yes (Other)
  Sender: FDA-Public Use
  Company Number: 2006035429

PATIENT
  Age: 71 Year
  Sex: Female

DRUGS (2)
  1. CELEBREX [Suspect]
     Indication: RHEUMATOID ARTHRITIS
  2. ANTIVERT ^PFIZER^ (MECLOZINE HYDROCHLORIDE) [Concomitant]

REACTIONS (6)
  - CONVULSION [None]
  - HEARING IMPAIRED [None]
  - HYPERTENSION [None]
  - HYPERTONIC BLADDER [None]
  - MEMORY IMPAIRMENT [None]
  - MIGRAINE [None]
